FAERS Safety Report 13309268 (Version 1)
Quarter: 2017Q1

REPORT INFORMATION
  Report Type: Spontaneous
  Country: AU (occurrence: AU)
  Receive Date: 20170309
  Receipt Date: 20170309
  Transmission Date: 20170428
  Serious: Yes (Other)
  Sender: FDA-Public Use
  Company Number: AU-009507513-1703AUS003337

PATIENT
  Age: 6 Year
  Sex: Female

DRUGS (1)
  1. SINGULAIR [Suspect]
     Active Substance: MONTELUKAST SODIUM
     Dosage: MILLIGRAM , ONE TIME
     Route: 048
     Dates: start: 20151027, end: 20160510

REACTIONS (7)
  - Abulia [Recovering/Resolving]
  - Depression [Recovering/Resolving]
  - Paranoia [Recovering/Resolving]
  - Headache [Recovering/Resolving]
  - Emotional poverty [Recovering/Resolving]
  - Abdominal pain upper [Recovering/Resolving]
  - Dizziness [Recovering/Resolving]

NARRATIVE: CASE EVENT DATE: 20160514
